FAERS Safety Report 21699173 (Version 4)
Quarter: 2024Q1

REPORT INFORMATION
  Report Type: Spontaneous
  Country: GB (occurrence: None)
  Receive Date: 20221208
  Receipt Date: 20240228
  Transmission Date: 20240409
  Serious: Yes (Other)
  Sender: FDA-Public Use
  Company Number: GB-ROCHE-3224496

PATIENT
  Sex: Female

DRUGS (1)
  1. TOCILIZUMAB [Suspect]
     Active Substance: TOCILIZUMAB
     Indication: Giant cell arteritis
     Route: 058
     Dates: start: 20200310

REACTIONS (6)
  - Spinal fracture [Unknown]
  - Rib fracture [Unknown]
  - Back injury [Unknown]
  - Cognitive disorder [Unknown]
  - Off label use [Unknown]
  - Pneumonia [Unknown]
